FAERS Safety Report 5973377-3 (Version None)
Quarter: 2008Q4

REPORT INFORMATION
  Report Type: 
  Country: None (occurrence: None)
  Receive Date: 20081201
  Receipt Date: 20080617
  Transmission Date: 20090506
  Serious: Yes (Other)
  Sender: FDA-Public Use
  Company Number: US-AMGEN-KDL281568

PATIENT
  Sex: Female
  Weight: 77.2 kg

DRUGS (6)
  1. ENBREL [Suspect]
     Indication: RHEUMATOID ARTHRITIS
     Route: 058
     Dates: start: 20060518
  2. SYNTHROID [Concomitant]
  3. IMURAN [Concomitant]
  4. NORVASC [Concomitant]
  5. COZAAR [Concomitant]
  6. LANTUS [Concomitant]

REACTIONS (5)
  - CHILLS [None]
  - INFECTIOUS MONONUCLEOSIS [None]
  - OROPHARYNGEAL PAIN [None]
  - PHARYNGEAL OEDEMA [None]
  - PYREXIA [None]
